FAERS Safety Report 7917043-3 (Version None)
Quarter: 2011Q4

REPORT INFORMATION
  Report Type: 
  Country: None (occurrence: None)
  Receive Date: 20111114
  Receipt Date: 20111028
  Transmission Date: 20120403
  Serious: Yes (Life-Threatening, Hospitalization)
  Sender: FDA-Public Use
  Company Number: 2011P1010040

PATIENT
  Age: 64 Year
  Sex: Female

DRUGS (5)
  1. GABAPENTIN [Suspect]
     Indication: PAIN
     Dosage: 300 MG;PO, 600 MG;PO, 900 MG;PO
     Route: 048
     Dates: start: 20110104, end: 20110601
  2. GABAPENTIN [Suspect]
     Indication: PAIN
     Dosage: 300 MG;PO, 600 MG;PO, 900 MG;PO
     Route: 048
     Dates: start: 20110601
  3. FENTANYL [Suspect]
     Indication: PAIN IN EXTREMITY
     Dosage: 1 PATCH;TDER
     Route: 062
  4. FENTANYL [Suspect]
     Indication: PAIN IN EXTREMITY
     Dosage: 1 PATCH;TDER
     Route: 062
     Dates: start: 20110615
  5. GLICLAZIDE [Concomitant]

REACTIONS (5)
  - RENAL IMPAIRMENT [None]
  - DIABETIC NEUROPATHY [None]
  - RESPIRATORY ARREST [None]
  - DRUG INTERACTION [None]
  - SOMNOLENCE [None]
